FAERS Safety Report 9790347 (Version 2)
Quarter: 2013Q4

REPORT INFORMATION
  Report Type: Spontaneous
  Country: JP (occurrence: JP)
  Receive Date: 20131231
  Receipt Date: 20131231
  Transmission Date: 20140711
  Serious: Yes (Other)
  Sender: FDA-Public Use
  Company Number: JP-TAKEDA-TCI2012A02778

PATIENT
  Age: 71 Year
  Sex: Female

DRUGS (10)
  1. ACTOS TABLETS 15 [Suspect]
     Indication: DIABETES MELLITUS
     Dosage: 15 MG, 1 DAYS
     Route: 048
     Dates: start: 2002, end: 201107
  2. GLIMICRON [Concomitant]
     Indication: DIABETES MELLITUS
     Dosage: UNK
     Route: 048
     Dates: start: 2002
  3. NU-LOTAN [Concomitant]
     Route: 048
  4. NU-LOTAN [Concomitant]
     Route: 048
  5. NORVASC [Concomitant]
     Route: 048
  6. NORVASC [Concomitant]
     Route: 048
  7. NATRIX [Concomitant]
     Route: 048
  8. NATRIX [Concomitant]
     Route: 048
  9. LIPITOR [Concomitant]
     Route: 048
  10. LIPITOR [Concomitant]
     Route: 048

REACTIONS (2)
  - Ureteric cancer [Unknown]
  - Bladder cancer [Unknown]
